FAERS Safety Report 22059071 (Version 1)
Quarter: 2023Q1

REPORT INFORMATION
  Report Type: Spontaneous
  Country: US (occurrence: None)
  Receive Date: 20230302
  Receipt Date: 20230302
  Transmission Date: 20230418
  Serious: Yes (Hospitalization)
  Sender: FDA-Public Use
  Company Number: None

PATIENT
  Sex: Male

DRUGS (10)
  1. HUMIRA [Suspect]
     Active Substance: ADALIMUMAB
     Indication: Product used for unknown indication
     Dosage: 40 MG/0.4ML SUBCUTANEOUS? ?INJECT 1 SYRINGE UNDER THE SKIN (SUBCUTNEOUS INJECTION) EVERY 14 DAYS?
     Route: 058
     Dates: start: 20200204
  2. HUMIRA [Suspect]
     Active Substance: ADALIMUMAB
     Dosage: OTHER QUANTITY : 1 SYRINGE;?FREQUENCY : EVERY OTHER WEEK;?
     Route: 058
  3. AMLODIPINE [Concomitant]
  4. CELEBREX [Concomitant]
     Active Substance: CELECOXIB
  5. FINASTERIDE [Concomitant]
     Active Substance: FINASTERIDE
  6. GABAPENTIN [Concomitant]
     Active Substance: GABAPENTIN
  7. LISINOPRIL [Concomitant]
     Active Substance: LISINOPRIL
  8. METFORMIN [Concomitant]
     Active Substance: METFORMIN HYDROCHLORIDE
  9. SULFASALAZINE DELAYED-RELEASE [Concomitant]
     Active Substance: SULFASALAZINE
  10. TAMSULOSIN [Concomitant]
     Active Substance: TAMSULOSIN

REACTIONS (3)
  - Therapy interrupted [None]
  - Loss of personal independence in daily activities [None]
  - Pain [None]
